FAERS Safety Report 9827297 (Version 1)
Quarter: 2014Q1

REPORT INFORMATION
  Report Type: Spontaneous
  Country: JP (occurrence: JP)
  Receive Date: 20140117
  Receipt Date: 20140117
  Transmission Date: 20141002
  Serious: Yes (Other)
  Sender: FDA-Public Use
  Company Number: JP-009507513-1401JPN004657

PATIENT
  Age: 74 Year
  Sex: 0

DRUGS (4)
  1. CLARITIN [Suspect]
     Indication: RHINITIS ALLERGIC
     Dosage: 10 MG, QD
     Route: 048
  2. PRANLUKAST [Concomitant]
     Dosage: UNKNOWN
     Route: 065
  3. EMPYNASE P [Concomitant]
     Dosage: UNKNOWN
     Route: 065
  4. SELBEX [Concomitant]
     Dosage: UNKNOWN
     Route: 048

REACTIONS (1)
  - Convulsion [Unknown]
